FAERS Safety Report 6259532-6 (Version None)
Quarter: 2009Q3

REPORT INFORMATION
  Report Type: 
  Country: None (occurrence: None)
  Receive Date: 20090708
  Receipt Date: 20090630
  Transmission Date: 20100115
  Serious: Yes (Other)
  Sender: FDA-Public Use
  Company Number: US-WYE-H09982009

PATIENT
  Sex: Male
  Weight: 86.26 kg

DRUGS (5)
  1. EFFEXOR [Suspect]
     Indication: DEPRESSION
     Route: 048
     Dates: start: 20050101
  2. BENICAR [Concomitant]
     Indication: HYPERTENSION
     Route: 048
  3. DILAUDID [Concomitant]
     Dosage: UNKNOWN
     Dates: end: 20090601
  4. OPANA ER [Suspect]
     Indication: BACK PAIN
     Route: 048
     Dates: start: 20090602, end: 20090615
  5. OPANA ER [Suspect]
     Route: 048
     Dates: start: 20090616, end: 20090623

REACTIONS (3)
  - LIP BLISTER [None]
  - URTICARIA [None]
  - WOUND SECRETION [None]
